FAERS Safety Report 4513109-9 (Version None)
Quarter: 2004Q4

REPORT INFORMATION
  Report Type: 
  Country: None (occurrence: None)
  Receive Date: 20040928
  Receipt Date: 20040701
  Transmission Date: 20050328
  Serious: No
  Sender: FDA-Public Use
  Company Number: 04P-163-0265393-00

PATIENT
  Age: 68 Year
  Sex: Female
  Weight: 97.5234 kg

DRUGS (9)
  1. HUMIRA [Suspect]
     Indication: RHEUMATOID ARTHRITIS
     Dosage: 40 MG, 1 IN 2 WK, SUBCUTANEOUS
     Route: 058
     Dates: start: 20031101
  2. LISINOPRIL [Concomitant]
  3. DYAZIDE [Concomitant]
  4. CONJUGATED ESTROGEN [Concomitant]
  5. METHOTREXATE [Concomitant]
  6. FOLIC ACID [Concomitant]
  7. FOLINIC ACID [Concomitant]
  8. LANSOPRAZOLE [Concomitant]
  9. LORATADINE [Concomitant]

REACTIONS (2)
  - INJECTION SITE RASH [None]
  - VAGINAL MYCOSIS [None]
